FAERS Safety Report 8159103-0 (Version None)
Quarter: 2012Q1

REPORT INFORMATION
  Report Type: 
  Country: None (occurrence: None)
  Receive Date: 20120217
  Receipt Date: 20120210
  Transmission Date: 20120608
  Serious: Yes (Death)
  Sender: FDA-Public Use
  Company Number: 2012-000545

PATIENT
  Age: 33 Year
  Sex: Female

DRUGS (2)
  1. DILANTIN [Concomitant]
  2. LOESTRIN 24 FE [Suspect]
     Indication: METRORRHAGIA
     Dosage: ORAL
     Route: 048
     Dates: start: 20100201

REACTIONS (7)
  - HEADACHE [None]
  - ASPIRATION [None]
  - CONVULSION [None]
  - FOOD POISONING [None]
  - VOMITING [None]
  - MALAISE [None]
  - CYANOSIS [None]
